FAERS Safety Report 4772965-X (Version None)
Quarter: 2005Q3

REPORT INFORMATION
  Report Type: 
  Country: None (occurrence: None)
  Receive Date: 20050916
  Receipt Date: 20050908
  Transmission Date: 20060218
  Serious: Yes (Death, Other)
  Sender: FDA-Public Use
  Company Number: A-CH2005-10575

PATIENT
  Age: 14 Year
  Sex: 0

DRUGS (1)
  1. TRACLEER [Suspect]
     Dosage: ORAL
     Route: 048

REACTIONS (1)
  - PULMONARY HAEMORRHAGE [None]
